FAERS Safety Report 11891872 (Version 11)
Quarter: 2017Q3

REPORT INFORMATION
  Report Type: Spontaneous
  Country: US (occurrence: US)
  Receive Date: 20160106
  Receipt Date: 20170811
  Transmission Date: 20171127
  Serious: Yes (Other)
  Sender: FDA-Public Use
  Company Number: US-ACTELION PHARMACEUTICALS US, INC.-A-US2015-129373

PATIENT
  Age: 47 Year
  Sex: Female
  Weight: 108.84 kg

DRUGS (3)
  1. OPSUMIT [Suspect]
     Active Substance: MACITENTAN
     Indication: PULMONARY HYPERTENSION
     Dosage: 10 MG, QD
     Route: 048
     Dates: start: 20141008
  2. ADCIRCA [Concomitant]
     Active Substance: TADALAFIL
     Dosage: UNK
     Dates: end: 20151219
  3. OPSUMIT [Suspect]
     Active Substance: MACITENTAN
     Dosage: 10 MG, QD
     Route: 048

REACTIONS (28)
  - Chest discomfort [Unknown]
  - Pain [Unknown]
  - Flank pain [Unknown]
  - Paraesthesia [Unknown]
  - Fatigue [Unknown]
  - Emotional disorder [Unknown]
  - Breast pain [Unknown]
  - Headache [Unknown]
  - Crying [Unknown]
  - Anxiety [Unknown]
  - Asthenia [Unknown]
  - Nasopharyngitis [Unknown]
  - Hepatitis C [Unknown]
  - Pain in jaw [Unknown]
  - Dyspnoea exertional [Unknown]
  - Condition aggravated [Unknown]
  - Palpitations [Unknown]
  - Dyspnoea [Recovering/Resolving]
  - Weight increased [Unknown]
  - Glucose tolerance impaired [Unknown]
  - Cardiac ablation [Unknown]
  - Drug dose omission [Unknown]
  - Chest pain [Unknown]
  - Hypoaesthesia [Unknown]
  - Peripheral swelling [Unknown]
  - Pain in extremity [Unknown]
  - Dysstasia [Unknown]
  - Stress [Unknown]

NARRATIVE: CASE EVENT DATE: 20151223
